FAERS Safety Report 23331615 (Version 1)
Quarter: 2023Q4

REPORT INFORMATION
  Report Type: Report from Study
  Country: US (occurrence: US)
  Receive Date: 20231222
  Receipt Date: 20231222
  Transmission Date: 20240109
  Serious: Yes (Other)
  Sender: FDA-Public Use
  Company Number: US-JAZZ PHARMACEUTICALS-JPI-P-031243

PATIENT
  Sex: Female

DRUGS (4)
  1. XYREM [Suspect]
     Active Substance: SODIUM OXYBATE
     Indication: Narcolepsy
     Dosage: 2.25 GRAM, BID
     Dates: start: 20120119, end: 20121115
  2. XYREM [Suspect]
     Active Substance: SODIUM OXYBATE
     Indication: Hypersomnia
     Dosage: 3 GRAM, BID
     Dates: start: 20121116
  3. XYREM [Suspect]
     Active Substance: SODIUM OXYBATE
     Dosage: UNK
  4. DESVENLAFAXINE ALEMBIC [Concomitant]
     Dosage: UNK
     Dates: start: 20230101

REACTIONS (8)
  - Neck pain [Unknown]
  - Arthralgia [Unknown]
  - Road traffic accident [Unknown]
  - Intervertebral disc disorder [Unknown]
  - Swelling [Unknown]
  - Pain [Unknown]
  - Milk allergy [Unknown]
  - Gluten sensitivity [Unknown]
